FAERS Safety Report 6038814-7 (Version None)
Quarter: 2009Q1

REPORT INFORMATION
  Report Type: 
  Country: None (occurrence: None)
  Receive Date: 20090115
  Receipt Date: 20080801
  Transmission Date: 20090719
  Serious: No
  Sender: FDA-Public Use
  Company Number: US-BAYER-200813318BCC

PATIENT
  Age: 17 Year
  Sex: Female
  Weight: 59 kg

DRUGS (2)
  1. ALEVE (CAPLET) [Suspect]
     Indication: PYREXIA
     Dosage: TOTAL DAILY DOSE: 1320 MG  UNIT DOSE: 220 MG
     Route: 048
     Dates: start: 20080731
  2. ALEVE (CAPLET) [Suspect]
     Dosage: TOTAL DAILY DOSE: 1320 MG  UNIT DOSE: 220 MG
     Route: 048
     Dates: start: 20080731

REACTIONS (5)
  - EYE SWELLING [None]
  - HYPERSENSITIVITY [None]
  - LIP SWELLING [None]
  - RASH MACULAR [None]
  - URTICARIA [None]
